FAERS Safety Report 12858455 (Version 1)
Quarter: 2016Q4

REPORT INFORMATION
  Report Type: Spontaneous
  Country: JP (occurrence: JP)
  Receive Date: 20161018
  Receipt Date: 20161018
  Transmission Date: 20170207
  Serious: Yes (Hospitalization)
  Sender: FDA-Public Use
  Company Number: JP-NORTHSTAR HEALTHCARE HOLDINGS-JP-2016NSR001857

PATIENT
  Age: 68 Year
  Sex: Male

DRUGS (1)
  1. ALLOPURINOL. [Suspect]
     Active Substance: ALLOPURINOL
     Indication: HYPERURICAEMIA
     Dosage: 200 MG, QD

REACTIONS (9)
  - Drug reaction with eosinophilia and systemic symptoms [Unknown]
  - Pyrexia [Unknown]
  - Face oedema [Unknown]
  - Renal impairment [Unknown]
  - Lymphadenopathy [Unknown]
  - Rash erythematous [Unknown]
  - Hepatic function abnormal [Unknown]
  - Agranulocytosis [Unknown]
  - Lymphocytosis [Unknown]
